FAERS Safety Report 12429954 (Version 1)
Quarter: 2016Q2

REPORT INFORMATION
  Report Type: Spontaneous
  Country: US (occurrence: US)
  Receive Date: 20160602
  Receipt Date: 20160602
  Transmission Date: 20160815
  Serious: No
  Sender: FDA-Public Use
  Company Number: US-BAYER-2016-100357

PATIENT
  Age: 80 Year
  Sex: Male
  Weight: 97.96 kg

DRUGS (1)
  1. ALEVE [Suspect]
     Active Substance: NAPROXEN SODIUM
     Indication: BACK PAIN
     Dosage: 2 DF, QD PROBABLY FOR SEVERAL YEARS
     Route: 048

REACTIONS (3)
  - Product use issue [None]
  - Drug ineffective [None]
  - Intentional product use issue [None]
